FAERS Safety Report 8139426-1 (Version None)
Quarter: 2012Q1

REPORT INFORMATION
  Report Type: 
  Country: None (occurrence: None)
  Receive Date: 20120215
  Receipt Date: 20120209
  Transmission Date: 20120608
  Serious: Yes (Other)
  Sender: FDA-Public Use
  Company Number: US-ROCHE-783730

PATIENT
  Sex: Male
  Weight: 62.198 kg

DRUGS (3)
  1. ACCUTANE [Suspect]
     Dates: start: 19950115, end: 19950622
  2. ACCUTANE [Suspect]
  3. ACCUTANE [Suspect]
     Indication: ACNE
     Route: 065
     Dates: start: 19941222, end: 19950110

REACTIONS (6)
  - INFLAMMATORY BOWEL DISEASE [None]
  - STRESS [None]
  - EPISTAXIS [None]
  - CROHN'S DISEASE [None]
  - INTESTINAL HAEMORRHAGE [None]
  - ACNE [None]
